FAERS Safety Report 6693626-6 (Version None)
Quarter: 2010Q2

REPORT INFORMATION
  Report Type: 
  Country: None (occurrence: None)
  Receive Date: 20100423
  Receipt Date: 20100417
  Transmission Date: 20101027
  Serious: Yes (Death, Hospitalization)
  Sender: FDA-Public Use
  Company Number: US-CELGENEUS-163-20785-10041499

PATIENT
  Sex: Male

DRUGS (3)
  1. THALOMID [Suspect]
     Route: 048
     Dates: start: 20090701
  2. THALOMID [Suspect]
     Route: 048
     Dates: start: 20070601
  3. PREDNISONE [Concomitant]
     Route: 065

REACTIONS (3)
  - ACUTE RESPIRATORY FAILURE [None]
  - DEVICE RELATED INFECTION [None]
  - FEBRILE NEUTROPENIA [None]
